FAERS Safety Report 7212029-9 (Version None)
Quarter: 2010Q4

REPORT INFORMATION
  Report Type: 
  Country: None (occurrence: None)
  Receive Date: 20101228
  Receipt Date: 20101215
  Transmission Date: 20110411
  Serious: Yes (Other)
  Sender: FDA-Public Use
  Company Number: 012390

PATIENT
  Sex: Female

DRUGS (1)
  1. BUSULFEX [Suspect]
     Indication: STEM CELL TRANSPLANT
     Dosage: INTRAVENOUS
     Route: 042

REACTIONS (3)
  - CARDIOVASCULAR DISORDER [None]
  - DRUG TOXICITY [None]
  - PULMONARY ARTERIAL HYPERTENSION [None]
